FAERS Safety Report 10263279 (Version 2)
Quarter: 2014Q2

REPORT INFORMATION
  Report Type: Report from Study
  Country: US (occurrence: US)
  Receive Date: 20140626
  Receipt Date: 20140626
  Transmission Date: 20141212
  Serious: Yes (Other)
  Sender: FDA-Public Use
  Company Number: US-MYLANLABS-2012S1008973

PATIENT
  Age: 62 Year
  Sex: Male
  Weight: 92.99 kg

DRUGS (18)
  1. CLOZAPINE TABLETS [Suspect]
     Dates: end: 20131230
  2. CLOZAPINE TABLETS [Suspect]
  3. CLOZAPINE TABLETS [Suspect]
     Route: 048
     Dates: end: 20131230
  4. CLOZAPINE TABLETS [Suspect]
     Route: 048
  5. LIPITOR [Concomitant]
  6. DEPAKOTE [Concomitant]
     Dosage: EXTENDED RELEASE
  7. COLACE [Concomitant]
  8. ALBUTEROL [Concomitant]
     Dosage: NEBULIZER TREATMENT AS NEEDED
  9. CLARITIN /00413701/ [Concomitant]
  10. ASPIRIN [Concomitant]
  11. LEVAQUIN [Concomitant]
  12. RISPERDAL [Concomitant]
     Dosage: AS NEEDED
  13. BUSPIRONE [Concomitant]
  14. ZOLOFT [Concomitant]
  15. OXYGEN [Concomitant]
     Dosage: 2 LITERS
     Route: 045
  16. ARTIFICIAL TEARS /00445101/ [Concomitant]
     Dosage: ONE DROP BOTH EYES
  17. TRAVATAN [Concomitant]
     Dosage: ONE DROP AT NIGHT
  18. LAMICTAL [Concomitant]

REACTIONS (1)
  - Granulocytopenia [Recovered/Resolved]
